FAERS Safety Report 4280662-2 (Version None)
Quarter: 2004Q1

REPORT INFORMATION
  Report Type: 
  Country: None (occurrence: None)
  Receive Date: 20040127
  Receipt Date: 20040116
  Transmission Date: 20041129
  Serious: Yes (Life-Threatening, Disabling)
  Sender: FDA-Public Use
  Company Number: NL-JNJFOC-20040103658

PATIENT
  Age: 38 Year
  Sex: Female

DRUGS (8)
  1. VASCOR [Suspect]
     Indication: ATRIAL FIBRILLATION
     Dosage: 200 MG, IN 1 DAY, ORAL 100 MG, IN 1 DAY, ORAL; 50 MG, IN 1 DAY, ORAL; 100 MG, IN 1 DAY,ORAL
     Route: 048
     Dates: start: 20030611, end: 20031208
  2. VASCOR [Suspect]
     Indication: ATRIAL FIBRILLATION
     Dosage: 200 MG, IN 1 DAY, ORAL 100 MG, IN 1 DAY, ORAL; 50 MG, IN 1 DAY, ORAL; 100 MG, IN 1 DAY,ORAL
     Route: 048
     Dates: start: 20010314
  3. VASCOR [Suspect]
     Indication: ATRIAL FIBRILLATION
     Dosage: 200 MG, IN 1 DAY, ORAL 100 MG, IN 1 DAY, ORAL; 50 MG, IN 1 DAY, ORAL; 100 MG, IN 1 DAY,ORAL
     Route: 048
     Dates: start: 20010509
  4. VASCOR [Suspect]
     Indication: ATRIAL FIBRILLATION
     Dosage: 200 MG, IN 1 DAY, ORAL 100 MG, IN 1 DAY, ORAL; 50 MG, IN 1 DAY, ORAL; 100 MG, IN 1 DAY,ORAL
     Route: 048
     Dates: start: 20010801
  5. DIGOXIN [Suspect]
     Indication: CARDIAC FAILURE
     Dosage: 0.125 MG, ORAL
     Route: 048
  6. TORSEMIDE [Suspect]
     Indication: CARDIAC FAILURE
     Dosage: 4 MG, ORAL
     Route: 048
     Dates: start: 20020501, end: 20031008
  7. WARFARIN POTASSIUM (WARFARIN POTASSIUM) [Concomitant]
  8. FUROSEMIDE [Concomitant]

REACTIONS (7)
  - APALLIC SYNDROME [None]
  - BLOOD POTASSIUM DECREASED [None]
  - CARDIO-RESPIRATORY ARREST [None]
  - ELECTROCARDIOGRAM QT PROLONGED [None]
  - LOSS OF CONSCIOUSNESS [None]
  - VENTRICULAR FIBRILLATION [None]
  - VENTRICULAR TACHYCARDIA [None]
